FAERS Safety Report 24971740 (Version 1)
Quarter: 2025Q1

REPORT INFORMATION
  Report Type: Spontaneous
  Country: RO (occurrence: RO)
  Receive Date: 20250214
  Receipt Date: 20250214
  Transmission Date: 20250409
  Serious: Yes (Hospitalization, Other)
  Sender: PFIZER
  Company Number: RO-ROCHE-10000194807

PATIENT
  Age: 76 Year

DRUGS (4)
  1. TRASTUZUMAB [Suspect]
     Active Substance: TRASTUZUMAB
  2. CARBOPLATIN [Suspect]
     Active Substance: CARBOPLATIN
  3. DOCETAXEL [Suspect]
     Active Substance: DOCETAXEL
  4. PERTUZUMAB [Suspect]
     Active Substance: PERTUZUMAB

REACTIONS (5)
  - Clostridium difficile colitis [Unknown]
  - Acute kidney injury [Unknown]
  - Dehydration [Unknown]
  - Anaemia [Unknown]
  - Electrolyte imbalance [Unknown]
